FAERS Safety Report 13072925 (Version 25)
Quarter: 2021Q3

REPORT INFORMATION
  Report Type: Spontaneous
  Country: US (occurrence: US)
  Receive Date: 20161229
  Receipt Date: 20210721
  Transmission Date: 20211014
  Serious: Yes (Hospitalization, Other)
  Sender: FDA-Public Use
  Company Number: US-PFIZER INC-2016602691

PATIENT
  Age: 62 Year
  Sex: Female
  Weight: 66 kg

DRUGS (4)
  1. LYRICA [Suspect]
     Active Substance: PREGABALIN
     Indication: PAIN
     Dosage: 100 MG, 3X/DAY
     Route: 048
  2. LYRICA [Suspect]
     Active Substance: PREGABALIN
     Indication: FIBROMYALGIA
     Dosage: 100 MG, 3X/DAY
     Route: 048
  3. LYRICA [Suspect]
     Active Substance: PREGABALIN
     Indication: ESSENTIAL HYPERTENSION
     Dosage: 100 MG, 1X/DAY
     Route: 048
     Dates: start: 201902, end: 2019
  4. LYRICA [Suspect]
     Active Substance: PREGABALIN
     Indication: SCIATICA
     Dosage: 100 MG, 3X/DAY (TAKE 1 CAPSULE 100 MG BY ORAL ROUTE 3 TIMES PER DAY, 30 DAYS, 90 CAPSULE)
     Route: 048

REACTIONS (23)
  - Pain [Not Recovered/Not Resolved]
  - Back pain [Unknown]
  - Illness [Unknown]
  - Movement disorder [Not Recovered/Not Resolved]
  - Dyspnoea [Unknown]
  - Thinking abnormal [Unknown]
  - Musculoskeletal stiffness [Unknown]
  - Pneumonia [Unknown]
  - Weight increased [Unknown]
  - Nasopharyngitis [Unknown]
  - Pain in extremity [Unknown]
  - Hypoaesthesia [Not Recovered/Not Resolved]
  - Bronchitis [Unknown]
  - Hypokinesia [Not Recovered/Not Resolved]
  - Product dose omission issue [Unknown]
  - Expired product administered [Unknown]
  - Muscle spasms [Not Recovered/Not Resolved]
  - Cardiac disorder [Unknown]
  - Intentional product misuse [Unknown]
  - Gait disturbance [Unknown]
  - Dysstasia [Unknown]
  - Body height decreased [Unknown]
  - Headache [Unknown]

NARRATIVE: CASE EVENT DATE: 20160207
